FAERS Safety Report 24387146 (Version 1)
Quarter: 2024Q4

REPORT INFORMATION
  Report Type: Report from Study
  Country: RU (occurrence: RU)
  Receive Date: 20241002
  Receipt Date: 20241002
  Transmission Date: 20250115
  Serious: Yes (Other)
  Sender: JOHNSON AND JOHNSON
  Company Number: RU-JNJFOC-20240964255

PATIENT
  Age: 40 Year
  Sex: Male
  Weight: 80 kg

DRUGS (2)
  1. ETRAVIRINE [Suspect]
     Active Substance: ETRAVIRINE
     Indication: HIV infection
     Route: 048
     Dates: start: 20230517, end: 20230815
  2. ABACAVIR + LAMIVUDINA [Concomitant]

REACTIONS (1)
  - Nausea [Recovering/Resolving]

NARRATIVE: CASE EVENT DATE: 20230520
